FAERS Safety Report 9049832 (Version 1)
Quarter: 2013Q1

REPORT INFORMATION
  Report Type: Spontaneous
  Country: US (occurrence: US)
  Receive Date: 20130206
  Receipt Date: 20130206
  Transmission Date: 20140127
  Serious: Yes (Hospitalization, Other)
  Sender: FDA-Public Use
  Company Number: US-AMGEN-USASP2013004188

PATIENT
  Age: 47 Year
  Sex: Male
  Weight: 90.7 kg

DRUGS (6)
  1. ENBREL [Suspect]
     Indication: PSORIATIC ARTHROPATHY
     Dosage: UNK
  2. REMICADE [Concomitant]
     Indication: PSORIATIC ARTHROPATHY
     Dosage: 600 MG,EVERY 6-8WEEKS
     Route: 042
     Dates: start: 2007, end: 201205
  3. HUMIRA [Concomitant]
     Indication: PSORIATIC ARTHROPATHY
     Dosage: UNK
  4. METHOTREXATE [Concomitant]
     Dosage: UNK
  5. AMPICILLIN [Concomitant]
     Dosage: UNK
  6. UNSPECIFIED INGREDIENT [Suspect]
     Dosage: UNK

REACTIONS (19)
  - Loss of consciousness [Unknown]
  - Monocyte count increased [Unknown]
  - Haemoglobin decreased [Unknown]
  - Red blood cell count decreased [Unknown]
  - Hepatic cirrhosis [Not Recovered/Not Resolved]
  - Tachycardia [Recovered/Resolved]
  - Dyspnoea [Recovered/Resolved]
  - Infusion related reaction [Recovered/Resolved]
  - Anaemia [Unknown]
  - Glycosylated haemoglobin increased [Not Recovered/Not Resolved]
  - Platelet disorder [Not Recovered/Not Resolved]
  - Dermatomyositis [Recovered/Resolved]
  - Muscle enzyme increased [Recovered/Resolved]
  - Arthralgia [Unknown]
  - Fatigue [Recovered/Resolved]
  - White blood cell disorder [Not Recovered/Not Resolved]
  - Blood creatine phosphokinase increased [Unknown]
  - Lupus-like syndrome [Unknown]
  - Drug ineffective [Unknown]
